FAERS Safety Report 4655008-8 (Version None)
Quarter: 2005Q2

REPORT INFORMATION
  Report Type: 
  Country: None (occurrence: None)
  Receive Date: 20050506
  Receipt Date: 20050426
  Transmission Date: 20051028
  Serious: Yes (Other)
  Sender: FDA-Public Use
  Company Number: AU-BRISTOL-MYERS SQUIBB COMPANY-12950408

PATIENT
  Age: 45 Year
  Sex: Male

DRUGS (1)
  1. KARVEA [Suspect]
     Dates: start: 20050330

REACTIONS (2)
  - BLINDNESS TRANSIENT [None]
  - VISUAL DISTURBANCE [None]
